FAERS Safety Report 18571133 (Version 3)
Quarter: 2021Q1

REPORT INFORMATION
  Report Type: Other
  Country: US (occurrence: US)
  Receive Date: 20201202
  Receipt Date: 20210212
  Transmission Date: 20210419
  Serious: Yes (Other)
  Sender: FDA-Public Use
  Company Number: US-ROCHE-2720982

PATIENT
  Age: 80 Year
  Sex: Female
  Weight: 55.84 kg

DRUGS (8)
  1. ACTEMRA [Suspect]
     Active Substance: TOCILIZUMAB
  2. ALENDRONIC ACID [Concomitant]
     Active Substance: ALENDRONIC ACID
     Indication: OSTEOPENIA
     Dates: start: 202003
  3. ACTEMRA [Suspect]
     Active Substance: TOCILIZUMAB
     Indication: GIANT CELL ARTERITIS
     Dosage: INJECT 162 MG SUBCUTANEOUSLY ONCE A WEEK.
     Route: 058
     Dates: start: 202004
  4. ACTEMRA [Suspect]
     Active Substance: TOCILIZUMAB
  5. ACTEMRA [Suspect]
     Active Substance: TOCILIZUMAB
     Indication: DEEP VEIN THROMBOSIS
  6. ACTEMRA [Suspect]
     Active Substance: TOCILIZUMAB
     Indication: EMBOLISM
  7. ACTEMRA [Suspect]
     Active Substance: TOCILIZUMAB
  8. RESTASIS [Concomitant]
     Active Substance: CYCLOSPORINE
     Indication: DRY EYE
     Dosage: ONE DROP EACH EYE; ONGOING: YES, 0.05 %
     Route: 031

REACTIONS (3)
  - Deep vein thrombosis [Not Recovered/Not Resolved]
  - Blood cholesterol increased [Not Recovered/Not Resolved]
  - Alopecia [Not Recovered/Not Resolved]

NARRATIVE: CASE EVENT DATE: 202006
